FAERS Safety Report 8875099 (Version 1)
Quarter: 2012Q4

REPORT INFORMATION
  Report Type: 
  Country: US (occurrence: US)
  Receive Date: 20121029
  Receipt Date: 20121029
  Transmission Date: 20130627
  Serious: No
  Sender: FDA-Public Use
  Company Number: US-PFIZER INC-2012269488

PATIENT
  Sex: Female

DRUGS (2)
  1. PRISTIQ [Suspect]
     Indication: DEPRESSION
     Dosage: UNK
     Dates: start: 2012, end: 2012
  2. PRISTIQ [Suspect]
     Indication: ANXIETY
     Dosage: UNK, alternate day
     Dates: start: 2012

REACTIONS (2)
  - Inappropriate schedule of drug administration [Unknown]
  - Withdrawal syndrome [Unknown]
